FAERS Safety Report 6394398-5 (Version None)
Quarter: 2009Q4

REPORT INFORMATION
  Report Type: 
  Country: None (occurrence: None)
  Receive Date: 20091006
  Receipt Date: 20090916
  Transmission Date: 20100525
  Serious: Yes (Hospitalization)
  Sender: FDA-Public Use
  Company Number: SPL200900053

PATIENT
  Age: 37 Year
  Sex: Female

DRUGS (1)
  1. LUBIPROSTONE [Suspect]
     Indication: CONSTIPATION
     Dosage: 48 UG ORAL
     Route: 048
     Dates: start: 20090606, end: 20090616

REACTIONS (3)
  - HYPOAESTHESIA [None]
  - SUDDEN HEARING LOSS [None]
  - VERTIGO [None]
